FAERS Safety Report 14343529 (Version 1)
Quarter: 2018Q1

REPORT INFORMATION
  Report Type: Spontaneous
  Country: US (occurrence: US)
  Receive Date: 20180102
  Receipt Date: 20180102
  Transmission Date: 20180509
  Serious: Yes (Other)
  Sender: FDA-Public Use
  Company Number: US-BAYER-2017-248597

PATIENT
  Age: 32 Year
  Sex: Female

DRUGS (4)
  1. MIRENA [Suspect]
     Active Substance: LEVONORGESTREL
     Indication: CONTRACEPTION
  2. MIRENA [Suspect]
     Active Substance: LEVONORGESTREL
     Indication: CONTRACEPTION
     Dosage: 20 MCG/24HR, CONT
     Route: 015
     Dates: start: 20171024
  3. MIRENA [Suspect]
     Active Substance: LEVONORGESTREL
     Indication: MENORRHAGIA
  4. MIRENA [Suspect]
     Active Substance: LEVONORGESTREL
     Indication: MENORRHAGIA

REACTIONS (9)
  - Palpitations [None]
  - Genital haemorrhage [None]
  - Abdominal pain lower [None]
  - Menorrhagia [None]
  - Headache [None]
  - Post procedural haemorrhage [None]
  - Pelvic pain [None]
  - Device expulsion [None]
  - Medical device discomfort [None]

NARRATIVE: CASE EVENT DATE: 2017
